FAERS Safety Report 14561564 (Version 1)
Quarter: 2018Q1

REPORT INFORMATION
  Report Type: Spontaneous
  Country: US (occurrence: US)
  Receive Date: 20180222
  Receipt Date: 20180222
  Transmission Date: 20180509
  Serious: No
  Sender: FDA-Public Use
  Company Number: US-TEVA-771289ACC

PATIENT
  Age: 49 Year
  Sex: Female
  Weight: 71.65 kg

DRUGS (2)
  1. CETIRIZINE HYDROCHLORIDE-PSEUDOEPHEDRINE HYDROCHLORIDE ER 176 [Suspect]
     Active Substance: CETIRIZINE HYDROCHLORIDE\PSEUDOEPHEDRINE HYDROCHLORIDE
     Indication: NASAL CONGESTION
     Dosage: 1 DOSAGE FORMS DAILY; 1 DF = PSEUDOEPHEDRINE HYDROCHLORIDE120 MG + CETIRIZINE HYDROCHOLRIDE 5 MG
     Route: 048
     Dates: start: 20170515, end: 20170515
  2. METFORMIN [Concomitant]
     Active Substance: METFORMIN HYDROCHLORIDE

REACTIONS (3)
  - Hyperhidrosis [Recovering/Resolving]
  - Lip swelling [Recovered/Resolved]
  - Pruritus generalised [Recovering/Resolving]

NARRATIVE: CASE EVENT DATE: 20170515
